FAERS Safety Report 7368564-6 (Version None)
Quarter: 2011Q1

REPORT INFORMATION
  Report Type: 
  Country: None (occurrence: None)
  Receive Date: 20110323
  Receipt Date: 20110310
  Transmission Date: 20110831
  Serious: Yes (Other)
  Sender: FDA-Public Use
  Company Number: CA-JNJFOC-20110306696

PATIENT
  Sex: Male
  Weight: 64.41 kg

DRUGS (2)
  1. REMICADE [Suspect]
     Indication: POLYARTERITIS NODOSA
     Route: 042
  2. REMICADE [Suspect]
     Route: 042

REACTIONS (1)
  - RENAL CELL CARCINOMA [None]
